FAERS Safety Report 16022765 (Version 5)
Quarter: 2019Q2

REPORT INFORMATION
  Report Type: Spontaneous
  Country: FR (occurrence: FR)
  Receive Date: 20190301
  Receipt Date: 20190404
  Transmission Date: 20190711
  Serious: Yes (Death, Other)
  Sender: FDA-Public Use
  Company Number: FR-PFIZER INC-2019087692

PATIENT
  Age: 92 Year
  Sex: Male
  Weight: 88.7 kg

DRUGS (9)
  1. ROVAMYCINE [SPIRAMYCIN] [Suspect]
     Active Substance: SPIRAMYCIN
     Indication: LUNG INFECTION
     Dosage: 4 DF, DAILY
     Route: 048
     Dates: start: 20190130, end: 20190201
  2. ADENURIC [Suspect]
     Active Substance: FEBUXOSTAT
     Indication: GOUT
     Dosage: 1 DF, DAILY
     Route: 048
     Dates: start: 20190201, end: 20190201
  3. ATROVENT [Suspect]
     Active Substance: IPRATROPIUM BROMIDE
     Indication: CHRONIC OBSTRUCTIVE PULMONARY DISEASE
     Dosage: 3 DF, DAILY
     Route: 055
     Dates: start: 20190201, end: 20190201
  4. VERAPAMIL HCL [Suspect]
     Active Substance: VERAPAMIL HYDROCHLORIDE
     Indication: HYPERTENSION
     Dosage: 1 DF, DAILY
     Route: 048
     Dates: start: 20190201, end: 20190201
  5. CEFTRIAXONE MYLAN [Suspect]
     Active Substance: CEFTRIAXONE
     Indication: LUNG INFECTION
     Dosage: 1 DF, UNK
     Route: 041
     Dates: start: 20190126, end: 20190201
  6. RAMIPRIL MYLAN [Suspect]
     Active Substance: RAMIPRIL
     Indication: HYPERTENSION
     Dosage: 1 DF, DAILY
     Route: 048
     Dates: end: 20190201
  7. VENOFER [Suspect]
     Active Substance: IRON SUCROSE
     Indication: ANAEMIA
     Dosage: 2 DF, DAILY
     Route: 041
     Dates: start: 20190131, end: 20190131
  8. BRICANYL [Suspect]
     Active Substance: TERBUTALINE SULFATE
     Indication: CHRONIC OBSTRUCTIVE PULMONARY DISEASE
     Dosage: 3 DF, DAILY
     Route: 055
     Dates: start: 20190201, end: 20190201
  9. PREVISCAN [FLUINDIONE] [Suspect]
     Active Substance: FLUINDIONE
     Indication: ATRIAL FIBRILLATION
     Dosage: 1 DF, DAILY
     Route: 048
     Dates: start: 20190131, end: 20190131

REACTIONS (3)
  - Prothrombin time ratio decreased [Fatal]
  - Cerebral haematoma [Fatal]
  - International normalised ratio abnormal [Fatal]

NARRATIVE: CASE EVENT DATE: 20190201
